FAERS Safety Report 25307011 (Version 1)
Quarter: 2025Q2

REPORT INFORMATION
  Report Type: Spontaneous
  Country: AT (occurrence: AT)
  Receive Date: 20250513
  Receipt Date: 20250513
  Transmission Date: 20250717
  Serious: Yes (Hospitalization, Other)
  Sender: ROCHE
  Company Number: AT-ROCHE-10000278470

PATIENT

DRUGS (2)
  1. OBINUTUZUMAB [Suspect]
     Active Substance: OBINUTUZUMAB
     Indication: Follicular lymphoma
     Route: 065
  2. BENDAMUSTINE [Suspect]
     Active Substance: BENDAMUSTINE
     Indication: Follicular lymphoma
     Route: 065

REACTIONS (6)
  - Tumour lysis syndrome [Unknown]
  - Ascites [Unknown]
  - Hepatic cirrhosis [Unknown]
  - Follicular lymphoma [Unknown]
  - Cholecystitis [Unknown]
  - Peritonitis [Unknown]
